FAERS Safety Report 20807611 (Version 1)
Quarter: 2022Q2

REPORT INFORMATION
  Report Type: Report from Study
  Country: US (occurrence: US)
  Receive Date: 20220510
  Receipt Date: 20220510
  Transmission Date: 20220721
  Serious: Yes (Other)
  Sender: FDA-Public Use
  Company Number: US-GILEAD-2022-0579928

PATIENT
  Sex: Female

DRUGS (28)
  1. AZTREONAM LYSINE [Suspect]
     Active Substance: AZTREONAM LYSINE
     Indication: Cystic fibrosis lung
     Dosage: 1 AMPULE,TID, FOR 28 DAYS ON AND 28 DAYS OFF
     Route: 055
     Dates: start: 2015
  2. LANTUS [Concomitant]
     Active Substance: INSULIN GLARGINE
  3. BASAGLAR [Concomitant]
     Active Substance: INSULIN GLARGINE
  4. ZOFRAN [Concomitant]
     Active Substance: ONDANSETRON HYDROCHLORIDE
  5. PEPCID [Concomitant]
     Active Substance: FAMOTIDINE
  6. CARBOPLATIN [Concomitant]
     Active Substance: CARBOPLATIN
  7. SODIUM CHLORIDE [Concomitant]
     Active Substance: SODIUM CHLORIDE
  8. PACLITAXEL [Concomitant]
     Active Substance: PACLITAXEL
  9. CINVANTI [Concomitant]
     Active Substance: APREPITANT
  10. PULMOZYME [Concomitant]
     Active Substance: DORNASE ALFA
  11. DEXAMETHASONE [Concomitant]
     Active Substance: DEXAMETHASONE
  12. HEPARIN [Concomitant]
     Active Substance: HEPARIN SODIUM
  13. INCRUSE ELLIPTA [Concomitant]
     Active Substance: UMECLIDINIUM BROMIDE
  14. BREO ELLIPTA [Concomitant]
     Active Substance: FLUTICASONE FUROATE\VILANTEROL TRIFENATATE
  15. LEVOTHYROXINE [Concomitant]
     Active Substance: LEVOTHYROXINE
  16. IRON [Concomitant]
     Active Substance: IRON
  17. AMLODIPINE [Concomitant]
     Active Substance: AMLODIPINE BESYLATE
  18. FLUTICASONE PROPIONATE [Concomitant]
     Active Substance: FLUTICASONE PROPIONATE
  19. TRIKAFTA [Concomitant]
     Active Substance: ELEXACAFTOR\IVACAFTOR\TEZACAFTOR
  20. SODIUM CHLORIDE [Concomitant]
     Active Substance: SODIUM CHLORIDE
  21. NOVOLOG [Concomitant]
     Active Substance: INSULIN ASPART
  22. ALBUTEROL SULFATE [Concomitant]
     Active Substance: ALBUTEROL SULFATE
  23. AZITHROMYCIN [Concomitant]
     Active Substance: AZITHROMYCIN
  24. CITRACAL + D3 [Concomitant]
  25. VITAMIN D NOS [Concomitant]
     Active Substance: VITAMIN D NOS
  26. ZENPEP [Concomitant]
     Active Substance: PANCRELIPASE AMYLASE\PANCRELIPASE LIPASE\PANCRELIPASE PROTEASE
  27. PREDNISONE [Concomitant]
     Active Substance: PREDNISONE
  28. VITAMINS [Concomitant]
     Active Substance: VITAMINS

REACTIONS (1)
  - Cataract [Not Recovered/Not Resolved]
